FAERS Safety Report 8017129-1 (Version None)
Quarter: 2012Q1

REPORT INFORMATION
  Report Type: 
  Country: None (occurrence: None)
  Receive Date: 20120102
  Receipt Date: 20111221
  Transmission Date: 20120608
  Serious: Yes (Life-Threatening, Hospitalization, Disabling)
  Sender: FDA-Public Use
  Company Number: FR-ROCHE-1024335

PATIENT
  Sex: Male

DRUGS (6)
  1. ADRIAMYCIN PFS [Suspect]
     Indication: NON-HODGKIN'S LYMPHOMA
     Route: 042
     Dates: start: 20060908, end: 20061218
  2. CYCLOPHOSPHAMIDE [Suspect]
     Indication: NON-HODGKIN'S LYMPHOMA
     Route: 042
     Dates: start: 20060908, end: 20061218
  3. PREDNISONE TAB [Suspect]
     Indication: NON-HODGKIN'S LYMPHOMA
     Route: 048
     Dates: start: 20060909, end: 20061223
  4. MABTHERA [Suspect]
     Indication: NON-HODGKIN'S LYMPHOMA
     Route: 042
     Dates: start: 20060908, end: 20061218
  5. ONCOVIN [Suspect]
     Indication: NON-HODGKIN'S LYMPHOMA
     Route: 042
     Dates: start: 20060908, end: 20061218
  6. KETEK [Concomitant]
     Route: 048

REACTIONS (3)
  - LIVER TRANSPLANT [None]
  - HEPATITIS FULMINANT [None]
  - HEPATITIS B [None]
